FAERS Safety Report 4896020-3 (Version None)
Quarter: 2006Q1

REPORT INFORMATION
  Report Type: 
  Country: None (occurrence: None)
  Receive Date: 20060130
  Receipt Date: 20051229
  Transmission Date: 20060701
  Serious: Yes (Other)
  Sender: FDA-Public Use
  Company Number: US-NOVOPROD-249665

PATIENT
  Age: 52 Year
  Sex: Male
  Weight: 145 kg

DRUGS (3)
  1. NOVOLOG [Suspect]
     Indication: INSULIN-REQUIRING TYPE II DIABETES MELLITUS
     Dosage: 65 IU, BID
     Route: 058
     Dates: start: 20051205, end: 20051206
  2. HYZAAR [Concomitant]
     Indication: HYPERTENSION
     Route: 048
  3. ARTHROTEC [Concomitant]
     Indication: ARTHRALGIA
     Route: 048

REACTIONS (5)
  - ABDOMINAL PAIN [None]
  - BLOOD GLUCOSE INCREASED [None]
  - DRUG DISPENSING ERROR [None]
  - MEDICATION ERROR [None]
  - PANCREATITIS [None]
